FAERS Safety Report 11587441 (Version 2)
Quarter: 2015Q4

REPORT INFORMATION
  Report Type: Spontaneous
  Country: IR (occurrence: IR)
  Receive Date: 20151001
  Receipt Date: 20151005
  Transmission Date: 20160304
  Serious: Yes (Death, Hospitalization, Other)
  Sender: FDA-Public Use
  Company Number: PHHY2015IR117782

PATIENT
  Age: 14 Year
  Sex: Female

DRUGS (1)
  1. EXJADE [Suspect]
     Active Substance: DEFERASIROX
     Indication: THALASSAEMIA BETA
     Dosage: 1.5 MG, QD
     Route: 065

REACTIONS (9)
  - Hepatic failure [Fatal]
  - Drug-induced liver injury [Unknown]
  - Abdominal pain [Unknown]
  - Nausea [Unknown]
  - Hepatorenal syndrome [Fatal]
  - No therapeutic response [Fatal]
  - Jaundice [Unknown]
  - Encephalopathy [Fatal]
  - Vomiting [Unknown]
